FAERS Safety Report 26119055 (Version 1)
Quarter: 2025Q4

REPORT INFORMATION
  Report Type: Spontaneous
  Country: GB (occurrence: GB)
  Receive Date: 20251204
  Receipt Date: 20251204
  Transmission Date: 20260118
  Serious: Yes (Other)
  Sender: JOHNSON AND JOHNSON
  Company Number: GB-MHRA-37802666

PATIENT

DRUGS (3)
  1. PALIPERIDONE [Suspect]
     Active Substance: PALIPERIDONE
     Indication: Product used for unknown indication
     Dosage: FOUR WEEKLY INJECTION
  2. PALIPERIDONE [Suspect]
     Active Substance: PALIPERIDONE
  3. PALIPERIDONE [Suspect]
     Active Substance: PALIPERIDONE

REACTIONS (4)
  - Confusional state [Unknown]
  - Constipation [Unknown]
  - Agitation [Unknown]
  - Headache [Unknown]
